FAERS Safety Report 9691560 (Version 2)
Quarter: 2014Q2

REPORT INFORMATION
  Report Type: Spontaneous
  Country: GB (occurrence: GB)
  Receive Date: 20131115
  Receipt Date: 20140501
  Transmission Date: 20141212
  Serious: Yes (Disabling, Other)
  Sender: FDA-Public Use
  Company Number: PHHY2013GB129470

PATIENT
  Age: 51 Year
  Sex: Female
  Weight: 73.47 kg

DRUGS (2)
  1. VENLAFAXINE HYDROCHLORIDE [Suspect]
     Indication: DEPRESSED MOOD
     Dosage: 18.75 MG, QD
     Route: 048
     Dates: start: 20130707
  2. VENLAFAXINE HYDROCHLORIDE [Suspect]
     Dosage: 9.375 MG, UNK
     Route: 048

REACTIONS (10)
  - Pain [Unknown]
  - Lethargy [Not Recovered/Not Resolved]
  - Thirst [Not Recovered/Not Resolved]
  - Fatigue [Unknown]
  - Headache [Not Recovered/Not Resolved]
  - Paraesthesia [Unknown]
  - Dry mouth [Not Recovered/Not Resolved]
  - Tinnitus [Not Recovered/Not Resolved]
  - Condition aggravated [Unknown]
  - Drug withdrawal syndrome [Not Recovered/Not Resolved]
